FAERS Safety Report 8885836 (Version 2)
Quarter: 2013Q1

REPORT INFORMATION
  Report Type: Spontaneous
  Country: US (occurrence: US)
  Receive Date: 20121101
  Receipt Date: 20130208
  Transmission Date: 20140127
  Serious: No
  Sender: FDA-Public Use
  Company Number: US-009507513-2012SP012068

PATIENT
  Sex: Female

DRUGS (2)
  1. DULERA [Suspect]
     Dosage: 2 PUFFS, TWICE A DAY
     Route: 055
     Dates: start: 201103
  2. XOPENEX [Suspect]

REACTIONS (6)
  - Asthma [Recovered/Resolved]
  - Drug dose omission [Unknown]
  - Inappropriate schedule of drug administration [Unknown]
  - Palpitations [Unknown]
  - Drug ineffective [Unknown]
  - Product quality issue [Unknown]
